FAERS Safety Report 13167203 (Version 1)
Quarter: 2017Q1

REPORT INFORMATION
  Report Type: Spontaneous
  Country: US (occurrence: US)
  Receive Date: 20170131
  Receipt Date: 20170131
  Transmission Date: 20170428
  Serious: Yes (Hospitalization, Disabling)
  Sender: FDA-Public Use
  Company Number: None

PATIENT
  Age: 62 Year
  Sex: Male
  Weight: 88.45 kg

DRUGS (3)
  1. GAS-X [Suspect]
     Active Substance: DIMETHICONE
  2. DOCOLACE [Concomitant]
  3. MIRALAX [Suspect]
     Active Substance: POLYETHYLENE GLYCOL 3350
     Indication: CONSTIPATION
     Route: 048
     Dates: start: 20160606

REACTIONS (3)
  - Abdominal pain [None]
  - Constipation [None]
  - Hyperhidrosis [None]

NARRATIVE: CASE EVENT DATE: 20160429
